FAERS Safety Report 11980307 (Version 2)
Quarter: 2016Q1

REPORT INFORMATION
  Report Type: Spontaneous
  Country: US (occurrence: US)
  Receive Date: 20160129
  Receipt Date: 20160217
  Transmission Date: 20160526
  Serious: No
  Sender: FDA-Public Use
  Company Number: US-PFIZER INC-2015316177

PATIENT
  Age: 70 Year

DRUGS (1)
  1. SUTENT [Suspect]
     Active Substance: SUNITINIB MALATE
     Indication: RENAL CANCER
     Dosage: 50 MG, CYCLIC (ONE CAPSULE ONCE A DAY FOR 2 WEEKS ON/1 WEEK OFF)
     Route: 048

REACTIONS (3)
  - Swelling [Unknown]
  - Protein total abnormal [Unknown]
  - Blood pressure increased [Unknown]
